FAERS Safety Report 10192573 (Version 1)
Quarter: 2014Q2

REPORT INFORMATION
  Report Type: Spontaneous
  Country: US (occurrence: US)
  Receive Date: 20140523
  Receipt Date: 20140523
  Transmission Date: 20141212
  Serious: Yes (Hospitalization, Other)
  Sender: FDA-Public Use
  Company Number: US-ELI_LILLY_AND_COMPANY-US201405004305

PATIENT
  Sex: Male

DRUGS (1)
  1. HUMALOG LISPRO [Suspect]
     Indication: PRODUCT USED FOR UNKNOWN INDICATION
     Route: 058

REACTIONS (8)
  - Blood glucose increased [Recovering/Resolving]
  - Lethargy [Unknown]
  - Asthenia [Unknown]
  - Somnolence [Unknown]
  - Thirst [Unknown]
  - Malaise [Unknown]
  - Infusion site swelling [Unknown]
  - Rash [Unknown]
